FAERS Safety Report 8369681-4 (Version None)
Quarter: 2012Q2

REPORT INFORMATION
  Report Type: 
  Country: None (occurrence: None)
  Receive Date: 20120518
  Receipt Date: 20120516
  Transmission Date: 20120825
  Serious: Yes (Life-Threatening)
  Sender: FDA-Public Use
  Company Number: CN-BAYER-2012-048359

PATIENT
  Age: 67 Year
  Sex: Male
  Weight: 62 kg

DRUGS (6)
  1. LOPERAMIDE [Concomitant]
     Indication: DIARRHOEA
     Dosage: 2 MG, TID
     Dates: start: 20120119
  2. HERBAL PREPARATION [Concomitant]
     Indication: THROMBOCYTOPENIA
     Dosage: 3 DF, TID
     Dates: start: 20111117
  3. HERBAL PREPARATION [Concomitant]
     Dosage: 3 DF, TID
     Dates: start: 20111117
  4. COUGH MIXTURE A [Concomitant]
     Indication: COUGH
  5. SORAFENIB (RAF KINASE INHIBITOR) [Suspect]
     Indication: HEPATIC NEOPLASM MALIGNANT
     Dosage: 400 MG, BID
     Route: 048
     Dates: start: 20110714, end: 20120502
  6. SMECTA [AL+ HYDROX-MGCO3 GEL,AL+ MG+ SILIC,GLUCOSE MONOHYDR,GLYCYR [Concomitant]
     Indication: DIARRHOEA
     Dosage: 9 G, TID
     Dates: start: 20120119

REACTIONS (1)
  - THROMBOCYTOPENIA [None]
